FAERS Safety Report 15901621 (Version 2)
Quarter: 2019Q1

REPORT INFORMATION
  Report Type: Report from Study
  Country: US (occurrence: US)
  Receive Date: 20190201
  Receipt Date: 20190227
  Transmission Date: 20190417
  Serious: Yes (Hospitalization, Other)
  Sender: FDA-Public Use
  Company Number: US-ADAMAS PHARMA, LLC-2019ADA00029

PATIENT
  Age: 86 Year
  Sex: Female
  Weight: 69.84 kg

DRUGS (20)
  1. RYTARY [Suspect]
     Active Substance: CARBIDOPA\LEVODOPA
     Dosage: 61.75 MG, 9X/DAY
     Dates: start: 20181225
  2. LEXAPRO [Concomitant]
     Active Substance: ESCITALOPRAM OXALATE
     Dosage: UNK
     Dates: end: 201811
  3. GOCOVRI [Suspect]
     Active Substance: AMANTADINE
     Indication: DYSKINESIA
     Dosage: 137 MG, 1X/DAY AT BEDTIME
     Route: 048
     Dates: start: 20180624, end: 20180630
  4. TEMAZEPAM. [Suspect]
     Active Substance: TEMAZEPAM
     Dosage: UNK
     Dates: start: 20180606, end: 20190101
  5. NUEDEXTA [Concomitant]
     Active Substance: DEXTROMETHORPHAN HYDROBROMIDE\QUINIDINE SULFATE
     Dosage: UNK
  6. LOSARTAN POTASSIUM AND HYDROCHLOROTHIAZIDE [Concomitant]
     Active Substance: HYDROCHLOROTHIAZIDE\LOSARTAN POTASSIUM
  7. UNSPECIFIED OVER THE COUNTER STOOL SOFTENER [Concomitant]
  8. RYTARY [Suspect]
     Active Substance: CARBIDOPA\LEVODOPA
     Indication: PARKINSON^S DISEASE
     Dosage: UNK
     Dates: end: 20181224
  9. FOSAMAX [Concomitant]
     Active Substance: ALENDRONATE SODIUM
     Dosage: UNK
  10. LIPITOR [Concomitant]
     Active Substance: ATORVASTATIN CALCIUM
  11. EXELON [Concomitant]
     Active Substance: RIVASTIGMINE TARTRATE
     Dosage: UNK
  12. PENNSAID [Concomitant]
     Active Substance: DICLOFENAC SODIUM
  13. SEROQUEL [Suspect]
     Active Substance: QUETIAPINE FUMARATE
     Indication: HALLUCINATION
     Dosage: UNK
     Dates: start: 20181225, end: 201812
  14. OMEPRAZOLE. [Concomitant]
     Active Substance: OMEPRAZOLE
     Dosage: UNK, AS NEEDED
  15. ESCITALOPRAM [Concomitant]
     Active Substance: ESCITALOPRAM OXALATE
     Dosage: UNK
     Dates: start: 20181225
  16. MELOXICAM. [Concomitant]
     Active Substance: MELOXICAM
  17. LACTULOSE SOLUTION [Concomitant]
     Active Substance: LACTULOSE
  18. MYRBETRIQ [Concomitant]
     Active Substance: MIRABEGRON
  19. GOCOVRI [Suspect]
     Active Substance: AMANTADINE
     Dosage: 274 MG, 1X/DAY AT BEDTIME
     Route: 048
     Dates: start: 20180701, end: 2019
  20. TRAZODONE [Concomitant]
     Active Substance: TRAZODONE HYDROCHLORIDE
     Dosage: UNK
     Dates: start: 201811

REACTIONS (18)
  - Weight increased [Not Recovered/Not Resolved]
  - Gouty arthritis [Not Recovered/Not Resolved]
  - Pain [Not Recovered/Not Resolved]
  - Cataract operation [Recovered/Resolved]
  - Dementia [Not Recovered/Not Resolved]
  - Tremor [Recovering/Resolving]
  - Malaise [Unknown]
  - Lethargy [Unknown]
  - Unevaluable event [Unknown]
  - Psychotic disorder [Not Recovered/Not Resolved]
  - Decreased appetite [Unknown]
  - Hallucination, visual [Not Recovered/Not Resolved]
  - Cataract [Recovered/Resolved]
  - Dyspnoea [Unknown]
  - Skin lesion [Not Recovered/Not Resolved]
  - Hospitalisation [Recovered/Resolved]
  - Dyskinesia [Recovering/Resolving]
  - Gait disturbance [Not Recovered/Not Resolved]

NARRATIVE: CASE EVENT DATE: 2018
